FAERS Safety Report 8421544-1 (Version None)
Quarter: 2012Q2

REPORT INFORMATION
  Report Type: 
  Country: None (occurrence: None)
  Receive Date: 20120608
  Receipt Date: 20120525
  Transmission Date: 20120825
  Serious: Yes (Hospitalization)
  Sender: FDA-Public Use
  Company Number: JP-UCBSA-057510

PATIENT
  Age: 52 Year
  Sex: Female

DRUGS (5)
  1. CIMZIA [Suspect]
     Indication: RHEUMATOID ARTHRITIS
     Route: 058
     Dates: start: 20091225, end: 20120315
  2. PREDNISOLONE [Concomitant]
     Dosage: DAILY DOSE:4 MG
     Dates: start: 20110805
  3. METHOTREXATE [Concomitant]
     Dates: start: 20090121
  4. FOLIC ACID [Concomitant]
     Dosage: DAILY DOSE:5 MG
     Dates: start: 20070926
  5. CIMZIA [Suspect]
     Dosage: 275-08-001 STUDY :100 MG ONCE IN EVERY 2 WEEKS AND 200MG ONCE IN EVERY 2 WEEKS
     Route: 058

REACTIONS (1)
  - ATYPICAL MYCOBACTERIAL INFECTION [None]
